FAERS Safety Report 5870996-X (Version None)
Quarter: 2008Q3

REPORT INFORMATION
  Report Type: 
  Country: None (occurrence: None)
  Receive Date: 20080904
  Receipt Date: 20080901
  Transmission Date: 20090109
  Serious: Yes (Hospitalization)
  Sender: FDA-Public Use
  Company Number: GB-BOEHRINGER INGELHEIM GMBH, GERMANY-2008-UK-01507UK

PATIENT
  Sex: Male
  Weight: 3.5 kg

DRUGS (7)
  1. ATROVENT [Suspect]
     Indication: ASTHMA
     Route: 064
  2. AMINOPHYLLINE [Suspect]
     Indication: ASTHMA
     Route: 064
  3. AMOXICILLIN [Suspect]
     Indication: ASTHMA
     Route: 064
  4. CLARITHROMYCIN [Suspect]
     Indication: ASTHMA
     Route: 064
  5. HYDROCORTISONE [Suspect]
     Indication: ASTHMA
     Route: 064
  6. MAGNESIUM SULFATE [Suspect]
     Indication: ASTHMA
     Route: 064
  7. SALBUTAMOL SULPHATE [Suspect]
     Indication: ASTHMA
     Dosage: 5MG 6/1 DAYS
     Route: 064

REACTIONS (2)
  - FOETAL DISTRESS SYNDROME [None]
  - TACHYCARDIA FOETAL [None]
